FAERS Safety Report 7570882-3 (Version None)
Quarter: 2011Q2

REPORT INFORMATION
  Report Type: 
  Country: None (occurrence: None)
  Receive Date: 20110624
  Receipt Date: 20110609
  Transmission Date: 20111010
  Serious: Yes (Hospitalization)
  Sender: FDA-Public Use
  Company Number: SE-ASTRAZENECA-2011SE36895

PATIENT
  Age: 81 Year
  Sex: Female

DRUGS (16)
  1. DIGOXIN [Interacting]
     Indication: MYOCARDIAL INFARCTION
     Route: 048
     Dates: start: 20011019
  2. ACETAMINOPHEN [Concomitant]
  3. VISCOTEARS [Concomitant]
     Dosage: 2 MG/G
  4. LANTUS [Concomitant]
  5. ATACAND [Suspect]
     Indication: MYOCARDIAL INFARCTION
     Route: 048
  6. ISOPTIN [Interacting]
     Indication: MYOCARDIAL INFARCTION
     Route: 048
  7. FUROSEMIDE [Concomitant]
  8. OMEPRAZOLE [Concomitant]
  9. ZOPIKLON MYLAN [Concomitant]
  10. SPIRONOLACTONE [Suspect]
     Indication: MYOCARDIAL INFARCTION
     Route: 048
     Dates: start: 20110126
  11. SIMVASTATIN [Concomitant]
  12. METOPROLOL SANDOZ [Concomitant]
  13. WARFARIN SODIUM [Concomitant]
  14. DUROFERON [Concomitant]
  15. NOVORAPID [Concomitant]
  16. BEHEPAN [Concomitant]

REACTIONS (3)
  - HYPERKALAEMIA [None]
  - RENAL FAILURE [None]
  - DRUG THERAPEUTIC INCOMPATIBILITY [None]
